FAERS Safety Report 7650907-7 (Version None)
Quarter: 2011Q3

REPORT INFORMATION
  Report Type: 
  Country: None (occurrence: None)
  Receive Date: 20110802
  Receipt Date: 20110718
  Transmission Date: 20111222
  Serious: Yes (Hospitalization)
  Sender: FDA-Public Use
  Company Number: US-JUTA GMBH-2011-10968

PATIENT
  Age: 75 Year
  Sex: Female

DRUGS (4)
  1. LANTUS [Suspect]
     Indication: DIABETES MELLITUS
     Dosage: 15 UNITS DAILY
     Route: 058
  2. METFFORMIN HYDROCHLORIDE [Suspect]
     Indication: DIABETES MELLITUS
     Dosage: ONE TABLET IN THE AM AND ONE TABLET IN THE PM
     Route: 048
     Dates: start: 20110401
  3. METFFORMIN HYDROCHLORIDE [Suspect]
     Dosage: TWO TABLETS IN AM AND TWO TABLETS IN PM
     Route: 048
     Dates: start: 20090101
  4. JANUVIA [Suspect]
     Indication: DIABETES MELLITUS
     Dosage: UNK
     Dates: end: 20110401

REACTIONS (2)
  - HYPOGLYCAEMIA [None]
  - JOINT SWELLING [None]
